FAERS Safety Report 24370471 (Version 1)
Quarter: 2024Q3

REPORT INFORMATION
  Report Type: Report from Study
  Country: US (occurrence: US)
  Receive Date: 20240927
  Receipt Date: 20240927
  Transmission Date: 20241017
  Serious: Yes (Other)
  Sender: EXELIXIS
  Company Number: US-EXELIXIS-EXL-2024-000206

PATIENT
  Age: 79 Year
  Sex: Male
  Weight: 65.76 kg

DRUGS (5)
  1. CABOMETYX [Suspect]
     Active Substance: CABOZANTINIB S-MALATE
     Indication: Renal cancer
     Dosage: 40 MG, QD
     Route: 048
     Dates: start: 20240831
  2. REPATHA [Concomitant]
     Active Substance: EVOLOCUMAB
  3. PRILOSEC [Concomitant]
     Active Substance: OMEPRAZOLE MAGNESIUM
  4. VITAMIN D [Concomitant]
     Active Substance: VITAMIN D NOS
  5. VITAMIN D3 [Concomitant]
     Active Substance: CHOLECALCIFEROL

REACTIONS (10)
  - Neuropathy peripheral [Unknown]
  - Fatigue [Unknown]
  - Decreased appetite [Unknown]
  - Pain [Unknown]
  - Dizziness [Unknown]
  - Muscular weakness [Unknown]
  - Urinary tract infection [Recovering/Resolving]
  - Confusional state [Unknown]
  - Depression [Unknown]
  - Product quality issue [Unknown]

NARRATIVE: CASE EVENT DATE: 20240913
